FAERS Safety Report 18629896 (Version 1)
Quarter: 2020Q4

REPORT INFORMATION
  Report Type: Spontaneous
  Country: US (occurrence: US)
  Receive Date: 20201217
  Receipt Date: 20201217
  Transmission Date: 20210114
  Serious: No
  Sender: FDA-Public Use
  Company Number: US-PFIZER INC-2020497503

PATIENT
  Age: 73 Year
  Sex: Female
  Weight: 47.17 kg

DRUGS (2)
  1. XANAX [Suspect]
     Active Substance: ALPRAZOLAM
     Indication: PANIC ATTACK
  2. XANAX [Suspect]
     Active Substance: ALPRAZOLAM
     Indication: ANXIETY DISORDER
     Dosage: 1 MG, [ONE ROUND TABLET BY MOUTH TWICE TO THREE TIMES DAILY]
     Route: 048

REACTIONS (1)
  - Weight increased [Unknown]
